FAERS Safety Report 6458245-5 (Version None)
Quarter: 2009Q4

REPORT INFORMATION
  Report Type: 
  Country: None (occurrence: None)
  Receive Date: 20091125
  Receipt Date: 20091119
  Transmission Date: 20100525
  Serious: Yes (Other)
  Sender: FDA-Public Use
  Company Number: IE-MERCK-0911GBR00089

PATIENT
  Age: 21 Year
  Sex: Female

DRUGS (3)
  1. SINGULAIR [Suspect]
     Route: 048
  2. FLUTICASONE [Concomitant]
     Route: 065
  3. ALBUTEROL [Concomitant]
     Route: 065

REACTIONS (1)
  - ALLERGIC GRANULOMATOUS ANGIITIS [None]
